FAERS Safety Report 8001228-4 (Version None)
Quarter: 2011Q4

REPORT INFORMATION
  Report Type: 
  Country: None (occurrence: None)
  Receive Date: 20111222
  Receipt Date: 20111215
  Transmission Date: 20120403
  Serious: Yes (Hospitalization)
  Sender: FDA-Public Use
  Company Number: SE-B.I. PHARMACEUTICALS,INC./RIDGEFIELD-2011-SW-00544SW

PATIENT
  Age: 66 Year
  Sex: Female

DRUGS (8)
  1. OMEPRAZOLE [Concomitant]
     Indication: GASTROOESOPHAGEAL REFLUX DISEASE
  2. TRIOBE [Concomitant]
     Indication: HYPOVITAMINOSIS
  3. VENTOLIN [Concomitant]
     Indication: ASTHMA
     Dosage: 0.4 MG
  4. ATROVENT [Suspect]
     Indication: RHINORRHOEA
     Dosage: 84 MCG
     Route: 045
     Dates: start: 20070601
  5. BRICANYL [Concomitant]
     Indication: ASTHMA
     Dosage: 0.5 MG
  6. PREDNISOLONE [Concomitant]
     Indication: COUGH
  7. CALCIOPOS [Concomitant]
  8. SUMATRIPTAN SUCCINATE [Concomitant]
     Indication: MIGRAINE
     Dosage: 14.2857 MG

REACTIONS (3)
  - MIGRAINE [None]
  - VOLVULUS [None]
  - ABDOMINAL PAIN UPPER [None]
